FAERS Safety Report 9958342 (Version 1)
Quarter: 2014Q1

REPORT INFORMATION
  Report Type: Report from Study
  Country: AR (occurrence: AR)
  Receive Date: 20140305
  Receipt Date: 20140305
  Transmission Date: 20141002
  Serious: Yes (Hospitalization, Other)
  Sender: FDA-Public Use
  Company Number: AR-ROCHE-1358069

PATIENT
  Sex: Male

DRUGS (2)
  1. RANIBIZUMAB [Suspect]
     Indication: DIABETES MELLITUS
     Route: 050
     Dates: start: 201310, end: 201312
  2. RANIBIZUMAB [Suspect]
     Route: 050
     Dates: start: 201401

REACTIONS (2)
  - Myocardial infarction [Recovered/Resolved]
  - Diabetes mellitus [Recovered/Resolved]
